FAERS Safety Report 5742687-7 (Version None)
Quarter: 2008Q2

REPORT INFORMATION
  Report Type: 
  Country: None (occurrence: None)
  Receive Date: 20080515
  Receipt Date: 20080515
  Transmission Date: 20081010
  Serious: Yes (Hospitalization)
  Sender: FDA-Public Use
  Company Number: None

PATIENT
  Sex: Female
  Weight: 72.5755 kg

DRUGS (1)
  1. SEROQUEL [Suspect]
     Indication: DEPRESSION
     Dosage: 100 MG 1-2 TABS @ BEDTIME ORAL
     Route: 048
     Dates: start: 20080301, end: 20080320

REACTIONS (11)
  - BLINDNESS [None]
  - DIARRHOEA [None]
  - HALLUCINATION [None]
  - HEADACHE [None]
  - INSOMNIA [None]
  - PALPITATIONS [None]
  - PANIC ATTACK [None]
  - SUICIDAL IDEATION [None]
  - SYNCOPE [None]
  - VISUAL ACUITY REDUCED [None]
  - VOMITING [None]
